FAERS Safety Report 12468348 (Version 7)
Quarter: 2016Q3

REPORT INFORMATION
  Report Type: Report from Study
  Country: BR (occurrence: BR)
  Receive Date: 20160615
  Receipt Date: 20160928
  Transmission Date: 20161109
  Serious: Yes (Hospitalization, Other)
  Sender: FDA-Public Use
  Company Number: BR-B.I. PHARMACEUTICALS,INC./RIDGEFIELD-2016-BI-37896BI

PATIENT
  Age: 76 Year
  Sex: Male
  Weight: 93 kg

DRUGS (4)
  1. ESPIRONOLACTONE [Concomitant]
     Indication: CARDIAC FAILURE
     Dosage: 25 MG
     Route: 048
     Dates: start: 2015
  2. DABIGATRAN [Suspect]
     Active Substance: DABIGATRAN
     Indication: ATRIAL FIBRILLATION
     Dosage: 300 MG
     Route: 048
     Dates: start: 20151119, end: 20160505
  3. FUROSEMIDE. [Concomitant]
     Active Substance: FUROSEMIDE
     Indication: CARDIAC FAILURE
     Dosage: 60 MG
     Route: 048
     Dates: start: 2015
  4. CLOPIDOGREL [Concomitant]
     Active Substance: CLOPIDOGREL BISULFATE
     Indication: CORONARY ARTERY DISEASE
     Dosage: 75 MG
     Route: 048
     Dates: start: 1996

REACTIONS (2)
  - Upper respiratory tract infection [Recovered/Resolved]
  - Renal failure [Not Recovered/Not Resolved]

NARRATIVE: CASE EVENT DATE: 20160217
